FAERS Safety Report 7201363-4 (Version None)
Quarter: 2010Q4

REPORT INFORMATION
  Report Type: 
  Country: None (occurrence: None)
  Receive Date: 20101215
  Receipt Date: 20101126
  Transmission Date: 20110411
  Serious: Yes (Death)
  Sender: FDA-Public Use
  Company Number: CV20100667

PATIENT
  Sex: Male

DRUGS (8)
  1. PROPOFOL [Suspect]
     Indication: GENERAL ANAESTHESIA
     Dosage: , INTRAVENOUS (NOT OTHERWISE SPECIFIED)
     Route: 042
  2. CELUCURINE (SUXAMETHONIUM) (SUXAMETHONIUM) [Suspect]
     Indication: GENERAL ANAESTHESIA
  3. SUFENTA (SUFENTANIL CITRATE)(SUFENTANIL CITRATE) [Suspect]
     Indication: GENERAL ANAESTHESIA
  4. FLAGYL (METRONIDAZOLE)(METRONIDAZOLE) [Concomitant]
  5. CLAFORAN (CEFOTAXIME)(CEFOTAXIME) [Concomitant]
  6. ATENOLOL [Concomitant]
  7. PARACETAMOL (PARACETAMOL) (PARACETAMOL) [Concomitant]
  8. SPASFON (PHLOROGLUCINOL)(PHLOROGLUCINOL) [Concomitant]

REACTIONS (8)
  - ANAPHYLACTIC SHOCK [None]
  - BLOOD BILIRUBIN INCREASED [None]
  - BLOOD GLUCOSE INCREASED [None]
  - CARBON DIOXIDE DECREASED [None]
  - CARDIAC ARREST [None]
  - HAEMOGLOBIN DECREASED [None]
  - MUSCLE CONTRACTIONS INVOLUNTARY [None]
  - SKIN DISCOLOURATION [None]
